FAERS Safety Report 20838084 (Version 1)
Quarter: 2022Q2

REPORT INFORMATION
  Report Type: Spontaneous
  Country: US (occurrence: US)
  Receive Date: 20220517
  Receipt Date: 20220517
  Transmission Date: 20220721
  Serious: No
  Sender: FDA-Public Use
  Company Number: US-UNITED THERAPEUTICS-UNT-2022-009102

PATIENT
  Sex: Male

DRUGS (4)
  1. TYVASO [Suspect]
     Active Substance: TREPROSTINIL
     Indication: Pulmonary arterial hypertension
     Dosage: UNK
     Dates: start: 20211207
  2. TYVASO [Suspect]
     Active Substance: TREPROSTINIL
     Dosage: 18-72 ?G, QID
  3. TYVASO [Suspect]
     Active Substance: TREPROSTINIL
     Dosage: 72 ?G
  4. TYVASO [Suspect]
     Active Substance: TREPROSTINIL
     Dosage: 84 ?G
     Dates: start: 202204

REACTIONS (4)
  - Dyspnoea exertional [Recovering/Resolving]
  - Heart rate increased [Unknown]
  - Therapy partial responder [Recovering/Resolving]
  - Off label use [Unknown]
